FAERS Safety Report 20102250 (Version 4)
Quarter: 2022Q4

REPORT INFORMATION
  Report Type: Spontaneous
  Country: US (occurrence: US)
  Receive Date: 20211123
  Receipt Date: 20221220
  Transmission Date: 20230112
  Serious: Yes (Death, Hospitalization, Other)
  Sender: FDA-Public Use
  Company Number: US-PFIZER INC-202101563829

PATIENT
  Age: 80 Year
  Sex: Male

DRUGS (1)
  1. VYNDAMAX [Suspect]
     Active Substance: TAFAMIDIS
     Dosage: 61 MG

REACTIONS (5)
  - COVID-19 pneumonia [Fatal]
  - Cardiac amyloidosis [Unknown]
  - Diabetes mellitus [Unknown]
  - Hypertension [Unknown]
  - Hyperlipidaemia [Unknown]
